FAERS Safety Report 20101547 (Version 2)
Quarter: 2021Q4

REPORT INFORMATION
  Report Type: Spontaneous
  Country: US (occurrence: US)
  Receive Date: 20211123
  Receipt Date: 20211210
  Transmission Date: 20220303
  Serious: Yes (Other)
  Sender: FDA-Public Use
  Company Number: US-BAYER-2021A254423

PATIENT
  Age: 30 Year
  Sex: Male

DRUGS (4)
  1. KOGENATE FS [Suspect]
     Active Substance: ANTIHEMOPHILIC FACTOR, HUMAN RECOMBINANT
     Dosage: UNK
  2. KOGENATE FS [Suspect]
     Active Substance: ANTIHEMOPHILIC FACTOR, HUMAN RECOMBINANT
     Dosage: 3800 IU
     Route: 042
  3. KOGENATE FS [Suspect]
     Active Substance: ANTIHEMOPHILIC FACTOR, HUMAN RECOMBINANT
     Dosage: BID - TWICE DAILY TO TREAT AGGRESSION
     Dates: start: 202111, end: 202111
  4. KOGENATE FS [Suspect]
     Active Substance: ANTIHEMOPHILIC FACTOR, HUMAN RECOMBINANT
     Dosage: BID - ONCE DAILY TREAT AGGRESSION
     Dates: start: 202111, end: 202111

REACTIONS (3)
  - Haemorrhage [Recovered/Resolved]
  - Haemorrhage [Recovered/Resolved]
  - Aggression [Recovered/Resolved]

NARRATIVE: CASE EVENT DATE: 20211029
